FAERS Safety Report 21206662 (Version 1)
Quarter: 2022Q3

REPORT INFORMATION
  Report Type: Spontaneous
  Country: US (occurrence: None)
  Receive Date: 20220811
  Receipt Date: 20220811
  Transmission Date: 20221026
  Serious: Yes (Disabling)
  Sender: FDA-Public Use
  Company Number: None

PATIENT
  Age: 34 Year
  Sex: Female
  Weight: 78.75 kg

DRUGS (6)
  1. MONTELUKAST [Suspect]
     Active Substance: MONTELUKAST SODIUM
     Indication: Asthma
     Dosage: 1 TABLET(S)  AT BEDTIME ORAL?
     Route: 048
  2. Adviar Diskus [Concomitant]
  3. PROAIR HFA [Concomitant]
     Active Substance: ALBUTEROL SULFATE
  4. MINIPRESS [Concomitant]
     Active Substance: PRAZOSIN HYDROCHLORIDE
  5. Sertiline [Concomitant]
  6. womens one a day [Concomitant]

REACTIONS (7)
  - Anxiety [None]
  - Depression [None]
  - Dysphemia [None]
  - Abnormal dreams [None]
  - Tremor [None]
  - Suicidal ideation [None]
  - Product complaint [None]

NARRATIVE: CASE EVENT DATE: 20200101
